FAERS Safety Report 14422231 (Version 1)
Quarter: 2018Q1

REPORT INFORMATION
  Report Type: Spontaneous
  Country: US (occurrence: US)
  Receive Date: 20180123
  Receipt Date: 20180123
  Transmission Date: 20180509
  Serious: Yes (Hospitalization, Other)
  Sender: FDA-Public Use
  Company Number: US-ZYDUS-018859

PATIENT
  Age: 68 Year
  Sex: Male

DRUGS (4)
  1. WARFARIN [Concomitant]
     Active Substance: WARFARIN
     Indication: ANTICOAGULANT THERAPY
     Route: 065
  2. AMLODIPINE [Suspect]
     Active Substance: AMLODIPINE BESYLATE
     Indication: PRODUCT USED FOR UNKNOWN INDICATION
     Route: 065
  3. GABAPENTIN. [Suspect]
     Active Substance: GABAPENTIN
     Indication: PRODUCT USED FOR UNKNOWN INDICATION
     Route: 065
  4. INSULIN [Concomitant]
     Active Substance: INSULIN NOS
     Indication: PRODUCT USED FOR UNKNOWN INDICATION
     Route: 065

REACTIONS (16)
  - Acute kidney injury [Unknown]
  - Oliguria [Unknown]
  - Right ventricular diastolic collapse [Unknown]
  - Lactic acidosis [Unknown]
  - Distributive shock [Unknown]
  - Circulatory collapse [Recovering/Resolving]
  - Metabolic acidosis [Unknown]
  - Hyperkalaemia [Unknown]
  - Respiratory failure [Unknown]
  - Pericardial effusion [Recovered/Resolved]
  - Hypotension [Unknown]
  - Hyperglycaemia [Unknown]
  - Toxicity to various agents [Unknown]
  - Dyspnoea [Unknown]
  - Cardiogenic shock [Unknown]
  - Cardiac tamponade [Unknown]
